FAERS Safety Report 4429198-6 (Version None)
Quarter: 2004Q3

REPORT INFORMATION
  Report Type: 
  Country: None (occurrence: None)
  Receive Date: 20040726
  Receipt Date: 20040517
  Transmission Date: 20050211
  Serious: No
  Sender: FDA-Public Use
  Company Number: USA040567812

PATIENT
  Age: 46 Year
  Sex: Female

DRUGS (3)
  1. FORTEO [Suspect]
  2. OSCAL 500-D [Concomitant]
  3. MULTI-VITAMIN [Concomitant]

REACTIONS (3)
  - CHROMATURIA [None]
  - DYSPEPSIA [None]
  - URINE ABNORMALITY [None]
